FAERS Safety Report 9007384 (Version 1)
Quarter: 2013Q1

REPORT INFORMATION
  Report Type: Spontaneous
  Country: GB (occurrence: GB)
  Receive Date: 20130110
  Receipt Date: 20130110
  Transmission Date: 20140127
  Serious: Yes (Death, Hospitalization)
  Sender: FDA-Public Use
  Company Number: GB-TEVA-379155ISR

PATIENT
  Age: 64 Year
  Sex: Female
  Weight: 85 kg

DRUGS (5)
  1. NITROFURANTOIN [Suspect]
     Indication: URINARY TRACT INFECTION
     Route: 048
     Dates: start: 20120810, end: 20121219
  2. THYROXINE [Concomitant]
  3. OXYBUTYNIN [Concomitant]
  4. ASPIRIN [Concomitant]
  5. CITALOPRAM [Concomitant]

REACTIONS (5)
  - Autoimmune hepatitis [Fatal]
  - Acute hepatic failure [Fatal]
  - Encephalopathy [Not Recovered/Not Resolved]
  - Coagulopathy [Not Recovered/Not Resolved]
  - Fatigue [Not Recovered/Not Resolved]
